FAERS Safety Report 20056363 (Version 1)
Quarter: 2021Q4

REPORT INFORMATION
  Report Type: Spontaneous
  Country: GB (occurrence: GB)
  Receive Date: 20211111
  Receipt Date: 20211111
  Transmission Date: 20220303
  Serious: Yes (Other)
  Sender: FDA-Public Use
  Company Number: None

PATIENT
  Age: 41 Year
  Sex: Female
  Weight: 68 kg

DRUGS (1)
  1. CETIRIZINE HYDROCHLORIDE [Suspect]
     Active Substance: CETIRIZINE HYDROCHLORIDE
     Indication: Rhinitis allergic
     Dosage: 10 MG ONCE A DAY
     Route: 048
     Dates: start: 19980101, end: 20210409

REACTIONS (8)
  - Nausea [Recovering/Resolving]
  - Anxiety [Recovered/Resolved with Sequelae]
  - Fatigue [Not Recovered/Not Resolved]
  - Sleep disorder [Recovered/Resolved with Sequelae]
  - Dizziness [Recovered/Resolved]
  - Weight decreased [Recovered/Resolved with Sequelae]
  - Confusional state [Recovered/Resolved]
  - Pruritus [Recovered/Resolved]

NARRATIVE: CASE EVENT DATE: 20210312
